FAERS Safety Report 7166934-2 (Version None)
Quarter: 2010Q4

REPORT INFORMATION
  Report Type: 
  Country: None (occurrence: None)
  Receive Date: 20101216
  Receipt Date: 20101207
  Transmission Date: 20110411
  Serious: Yes (Other)
  Sender: FDA-Public Use
  Company Number: BR-ASTRAZENECA-2010SE58187

PATIENT
  Age: 22200 Day
  Sex: Female

DRUGS (2)
  1. ARIMIDEX [Suspect]
     Indication: ADJUVANT THERAPY
     Route: 048
     Dates: start: 20100831, end: 20100901
  2. TAMOXIFEN CITRATE [Concomitant]
     Dates: start: 20070701, end: 20100824

REACTIONS (10)
  - ABDOMINAL PAIN UPPER [None]
  - DECREASED APPETITE [None]
  - DIZZINESS [None]
  - HEADACHE [None]
  - MALAISE [None]
  - NAUSEA [None]
  - PYREXIA [None]
  - THIRST [None]
  - VISION BLURRED [None]
  - WEIGHT DECREASED [None]
